FAERS Safety Report 12058174 (Version 1)
Quarter: 2016Q1

REPORT INFORMATION
  Report Type: Spontaneous
  Country: US (occurrence: None)
  Receive Date: 20160208
  Receipt Date: 20160208
  Transmission Date: 20160526
  Serious: Yes (Hospitalization)
  Sender: FDA-Public Use
  Company Number: None

PATIENT
  Age: 66 Year
  Sex: Male
  Weight: 73.5 kg

DRUGS (1)
  1. ATORVASTATIN [Suspect]
     Active Substance: ATORVASTATIN
     Indication: CARDIAC OPERATION
     Route: 048
     Dates: start: 20160107, end: 20160108

REACTIONS (3)
  - Swollen tongue [None]
  - Wheezing [None]
  - Dysphagia [None]

NARRATIVE: CASE EVENT DATE: 20160107
